FAERS Safety Report 16029824 (Version 1)
Quarter: 2019Q1

REPORT INFORMATION
  Report Type: Report from Study
  Country: CA (occurrence: US)
  Receive Date: 20190304
  Receipt Date: 20190304
  Transmission Date: 20190418
  Serious: Yes (Death, Other)
  Sender: FDA-Public Use
  Company Number: CA-JNJFOC-20190232469

PATIENT

DRUGS (1)
  1. USTEKINUMAB [Suspect]
     Active Substance: USTEKINUMAB
     Indication: PSORIASIS
     Route: 058

REACTIONS (13)
  - Adverse event [Unknown]
  - Arthralgia [Unknown]
  - Nasopharyngitis [Unknown]
  - Fatigue [Unknown]
  - Hypertension [Unknown]
  - Urinary tract infection [Unknown]
  - Back pain [Unknown]
  - Bronchitis [Unknown]
  - Headache [Unknown]
  - Drug effect decreased [Unknown]
  - Sudden death [Fatal]
  - Pancreatic carcinoma [Fatal]
  - Upper respiratory tract infection [Unknown]
